FAERS Safety Report 13845406 (Version 1)
Quarter: 2017Q3

REPORT INFORMATION
  Report Type: Spontaneous
  Country: US (occurrence: US)
  Receive Date: 20170808
  Receipt Date: 20170808
  Transmission Date: 20171127
  Serious: Yes (Hospitalization, Other)
  Sender: FDA-Public Use
  Company Number: US-LUNDBECK-DKLU2035067

PATIENT
  Age: 70 Year
  Sex: Male

DRUGS (3)
  1. NORTHERA [Suspect]
     Active Substance: DROXIDOPA
     Indication: PARKINSON^S DISEASE
     Route: 048
     Dates: start: 2016
  2. NORTHERA [Suspect]
     Active Substance: DROXIDOPA
     Route: 048
  3. NORTHERA [Suspect]
     Active Substance: DROXIDOPA
     Indication: ORTHOSTATIC HYPOTENSION
     Route: 048

REACTIONS (17)
  - Hallucination, visual [Unknown]
  - Paranoia [Unknown]
  - Fall [Unknown]
  - Tremor [Unknown]
  - Neck pain [Unknown]
  - Anxiety [Unknown]
  - Dizziness [Unknown]
  - Blood pressure decreased [Unknown]
  - Insomnia [Unknown]
  - Orthostatic hypotension [Unknown]
  - Lethargy [Unknown]
  - Confusional state [Unknown]
  - Psychotic disorder [Unknown]
  - Loss of consciousness [Unknown]
  - Pain in extremity [Unknown]
  - Loss of personal independence in daily activities [Unknown]
  - Syncope [Unknown]

NARRATIVE: CASE EVENT DATE: 201611
